FAERS Safety Report 18967720 (Version 6)
Quarter: 2021Q4

REPORT INFORMATION
  Report Type: Other
  Country: CO (occurrence: CO)
  Receive Date: 20210304
  Receipt Date: 20211229
  Transmission Date: 20220303
  Serious: Yes (Other)
  Sender: FDA-Public Use
  Company Number: CO-002147023-NVSC2021CO042950

PATIENT
  Age: 77 Year
  Sex: Female
  Weight: 47 kg

DRUGS (3)
  1. XOLAIR [Suspect]
     Active Substance: OMALIZUMAB
     Indication: Urticaria
     Route: 058
     Dates: start: 20210217, end: 20210427
  2. XOLAIR [Suspect]
     Active Substance: OMALIZUMAB
     Dosage: DRUG CUMULATIVE DOSAGE NUMBER- 25.714
     Route: 058
  3. BILASTINE [Concomitant]
     Active Substance: BILASTINE
     Indication: Product used for unknown indication
     Route: 065

REACTIONS (24)
  - Dizziness [Not Recovered/Not Resolved]
  - Stomatitis [Not Recovered/Not Resolved]
  - Eye inflammation [Not Recovered/Not Resolved]
  - Inflammation [Not Recovered/Not Resolved]
  - External ear inflammation [Not Recovered/Not Resolved]
  - Chills [Not Recovered/Not Resolved]
  - Vomiting [Not Recovered/Not Resolved]
  - Abdominal pain upper [Not Recovered/Not Resolved]
  - Erythema [Not Recovered/Not Resolved]
  - Urticaria [Unknown]
  - Pruritus [Not Recovered/Not Resolved]
  - Hypersensitivity [Not Recovered/Not Resolved]
  - Application site pain [Not Recovered/Not Resolved]
  - Anxiety [Unknown]
  - Nervousness [Not Recovered/Not Resolved]
  - Insomnia [Not Recovered/Not Resolved]
  - Somatic symptom disorder [Unknown]
  - Feeling of despair [Not Recovered/Not Resolved]
  - Skin striae [Unknown]
  - Sneezing [Unknown]
  - Influenza [Unknown]
  - Discomfort [Unknown]
  - Pain [Unknown]
  - Body height decreased [Unknown]

NARRATIVE: CASE EVENT DATE: 20210217
